FAERS Safety Report 4633977-X (Version None)
Quarter: 2005Q2

REPORT INFORMATION
  Report Type: 
  Country: None (occurrence: None)
  Receive Date: 20050412
  Receipt Date: 20050412
  Transmission Date: 20051028
  Serious: Yes (Life-Threatening)
  Sender: FDA-Public Use
  Company Number: None

PATIENT
  Sex: Female
  Weight: 62.5964 kg

DRUGS (1)
  1. BENICAR [Suspect]
     Indication: HYPERTENSION
     Dosage: ONCE DAILY BY MOUTH
     Route: 048
     Dates: start: 20050409, end: 20050410

REACTIONS (5)
  - BLOOD PRESSURE DECREASED [None]
  - DIZZINESS POSTURAL [None]
  - FEELING ABNORMAL [None]
  - INFLUENZA [None]
  - NASOPHARYNGITIS [None]
